FAERS Safety Report 4568437-8 (Version None)
Quarter: 2005Q1

REPORT INFORMATION
  Report Type: 
  Country: None (occurrence: None)
  Receive Date: 20050131
  Receipt Date: 20050111
  Transmission Date: 20050727
  Serious: Yes (Hospitalization)
  Sender: FDA-Public Use
  Company Number: ATO-04-0963

PATIENT
  Age: 67 Year
  Sex: Male

DRUGS (1)
  1. TRISENOX [Suspect]
     Indication: MULTIPLE MYELOMA
     Dosage: 20 MG IVI
     Route: 042
     Dates: start: 20041025, end: 20041122

REACTIONS (9)
  - HAEMATOCRIT DECREASED [None]
  - HAEMOGLOBIN DECREASED [None]
  - HEART RATE INCREASED [None]
  - INFECTION [None]
  - LIGHT CHAIN ANALYSIS INCREASED [None]
  - ORAL MUCOSAL BLISTERING [None]
  - PYREXIA [None]
  - RASH MACULO-PAPULAR [None]
  - RASH PRURITIC [None]
